FAERS Safety Report 5706678-4 (Version None)
Quarter: 2008Q2

REPORT INFORMATION
  Report Type: 
  Country: None (occurrence: None)
  Receive Date: 20080415
  Receipt Date: 20080415
  Transmission Date: 20081010
  Serious: No
  Sender: FDA-Public Use
  Company Number: None

PATIENT
  Age: 63 Year
  Sex: Female
  Weight: 81.6475 kg

DRUGS (1)
  1. PROPRANOLOL [Suspect]
     Indication: PALPITATIONS
     Dosage: 480MG QD
     Dates: start: 20070401, end: 20070501

REACTIONS (1)
  - PALPITATIONS [None]
